FAERS Safety Report 10909221 (Version 1)
Quarter: 2015Q1

REPORT INFORMATION
  Report Type: Spontaneous
  Country: US (occurrence: US)
  Receive Date: 20150312
  Receipt Date: 20150312
  Transmission Date: 20150721
  Serious: No
  Sender: FDA-Public Use
  Company Number: US-SA-2014SA036340

PATIENT
  Age: 86 Year
  Sex: Male
  Weight: 84 kg

DRUGS (3)
  1. NASACORT ALLERGY 24HR [Suspect]
     Active Substance: TRIAMCINOLONE ACETONIDE
     Indication: NASAL CONGESTION
     Route: 065
     Dates: start: 20140221, end: 20140302
  2. LISINOPRIL. [Concomitant]
     Active Substance: LISINOPRIL
     Indication: HYPERTENSION
     Route: 065
     Dates: start: 1998
  3. OXYMETAZOLINE [Concomitant]
     Active Substance: OXYMETAZOLINE
     Indication: BLOOD PRESSURE

REACTIONS (4)
  - Somnolence [Unknown]
  - Blood pressure increased [Recovered/Resolved]
  - Stress [Unknown]
  - Therapeutic response decreased [Unknown]

NARRATIVE: CASE EVENT DATE: 20140319
